FAERS Safety Report 10011139 (Version 1)
Quarter: 2014Q1

REPORT INFORMATION
  Report Type: Spontaneous
  Country: US (occurrence: US)
  Receive Date: 20140314
  Receipt Date: 20140314
  Transmission Date: 20141002
  Serious: Yes (Hospitalization)
  Sender: FDA-Public Use
  Company Number: US-BAYER-2014-037737

PATIENT
  Age: 41 Year
  Sex: Female
  Weight: 111 kg

DRUGS (14)
  1. YAZ [Suspect]
     Indication: DYSMENORRHOEA
  2. AUGMENTIN [Concomitant]
  3. VICODIN [Concomitant]
  4. FLEXERIL [Concomitant]
  5. MEVACOR [Concomitant]
     Indication: HYPERLIPIDAEMIA
  6. BIAXIN [Concomitant]
  7. PROMETHAZINE [Concomitant]
  8. SERTRALINE [Concomitant]
  9. XOPENEX [Concomitant]
  10. ATROVENT [Concomitant]
  11. LEVAQUIN [Concomitant]
  12. ZOLOFT [Concomitant]
     Indication: DEPRESSION
  13. XANAX [Concomitant]
     Indication: ANXIETY
  14. RESTORIL [Concomitant]
     Indication: INSOMNIA

REACTIONS (1)
  - Pulmonary embolism [Recovered/Resolved]
